FAERS Safety Report 11119270 (Version 11)
Quarter: 2017Q1

REPORT INFORMATION
  Report Type: Spontaneous
  Country: US (occurrence: US)
  Receive Date: 20150518
  Receipt Date: 20170120
  Transmission Date: 20170428
  Serious: Yes (Hospitalization, Other)
  Sender: FDA-Public Use
  Company Number: US-PFIZER INC-2015162888

PATIENT
  Age: 66 Year
  Sex: Female
  Weight: 80 kg

DRUGS (9)
  1. IBRANCE [Suspect]
     Active Substance: PALBOCICLIB
     Dosage: 75 MG CYCLIC (DAY 1-21 EVERY 28 DAYS)
     Route: 048
     Dates: start: 20150515
  2. IBRANCE [Suspect]
     Active Substance: PALBOCICLIB
     Dosage: 100 MG, CYCLIC (DAY 1-21 Q 28 DAYS)
     Route: 048
     Dates: start: 20150509
  3. IBRANCE [Suspect]
     Active Substance: PALBOCICLIB
     Dosage: UNK
  4. IBRANCE [Suspect]
     Active Substance: PALBOCICLIB
     Indication: BREAST CANCER METASTATIC
     Dosage: 125 MG DAILY CYCLIC (EVERY 1-28 DAYS)
     Route: 048
     Dates: start: 20150509
  5. IBRANCE [Suspect]
     Active Substance: PALBOCICLIB
     Dosage: UNK
  6. IBRANCE [Suspect]
     Active Substance: PALBOCICLIB
     Dosage: 75 MG CYCLIC (DAY 1-21 Q 28 DAYS)
     Route: 048
     Dates: start: 201606
  7. LEVOFLOXACIN. [Concomitant]
     Active Substance: LEVOFLOXACIN
     Dosage: 500 MG, UNK (FOR TEN DAYS)
     Route: 048
  8. IBRANCE [Suspect]
     Active Substance: PALBOCICLIB
     Dosage: UNK
  9. IBRANCE [Suspect]
     Active Substance: PALBOCICLIB
     Dosage: 100 MG, CYCLIC (D1-21, Q 28 DAYS)
     Route: 048
     Dates: start: 20150509

REACTIONS (18)
  - Pyrexia [Unknown]
  - Pain in extremity [Unknown]
  - Red blood cell count decreased [Unknown]
  - Neoplasm progression [Unknown]
  - Nausea [Unknown]
  - Muscle spasms [Unknown]
  - Bone pain [Unknown]
  - Neutropenia [Unknown]
  - Cardiac failure congestive [Unknown]
  - Platelet count decreased [Unknown]
  - White blood cell count decreased [Unknown]
  - Fatigue [Unknown]
  - Cough [Unknown]
  - Blood count abnormal [Unknown]
  - Haemoglobin decreased [Unknown]
  - Neuropathy peripheral [Unknown]
  - Cardiac disorder [Unknown]
  - Pain [Unknown]

NARRATIVE: CASE EVENT DATE: 20150918
